FAERS Safety Report 6092397-4 (Version None)
Quarter: 2009Q1

REPORT INFORMATION
  Report Type: 
  Country: None (occurrence: None)
  Receive Date: 20090225
  Receipt Date: 20090211
  Transmission Date: 20090719
  Serious: Yes (Other)
  Sender: FDA-Public Use
  Company Number: PHHY2009BR05357

PATIENT
  Sex: Male

DRUGS (2)
  1. DIOVAN [Suspect]
     Dates: start: 20040101
  2. MIACALCIN [Concomitant]

REACTIONS (3)
  - BLOOD PRESSURE INCREASED [None]
  - BONE PAIN [None]
  - INTERVERTEBRAL DISC COMPRESSION [None]
